FAERS Safety Report 5017123-9 (Version None)
Quarter: 2006Q2

REPORT INFORMATION
  Report Type: 
  Country: None (occurrence: None)
  Receive Date: 20060525
  Receipt Date: 20060515
  Transmission Date: 20061013
  Serious: Yes (Hospitalization)
  Sender: FDA-Public Use
  Company Number: 2006SP001840

PATIENT
  Age: 53 Year
  Sex: Female
  Weight: 66 kg

DRUGS (11)
  1. LUNESTA [Suspect]
     Indication: INSOMNIA
     Dosage: 270 MG 1X ORAL ; 3 MG ORAL
     Route: 048
     Dates: start: 20050101, end: 20060301
  2. LUNESTA [Suspect]
     Indication: INSOMNIA
     Dosage: 270 MG 1X ORAL ; 3 MG ORAL
     Route: 048
     Dates: start: 20060312, end: 20060312
  3. PROZAC [Concomitant]
  4. WELLBUTRIN [Concomitant]
  5. TRAZODONE HCL [Concomitant]
  6. LORAZEPAM [Concomitant]
  7. HORMONES AND RELATED AGENTS [Concomitant]
  8. SOMA [Concomitant]
  9. IBUPROFEN [Concomitant]
  10. VITAMINS [Concomitant]
  11. ZANTAC [Concomitant]

REACTIONS (7)
  - ASPARTATE AMINOTRANSFERASE INCREASED [None]
  - DYSARTHRIA [None]
  - HYPOTENSION [None]
  - IMPULSIVE BEHAVIOUR [None]
  - LETHARGY [None]
  - OVERDOSE [None]
  - SUICIDE ATTEMPT [None]
